FAERS Safety Report 9816835 (Version 1)
Quarter: 2014Q1

REPORT INFORMATION
  Report Type: Report from Study
  Country: BR (occurrence: BR)
  Receive Date: 20140114
  Receipt Date: 20140114
  Transmission Date: 20141002
  Serious: Yes (Other)
  Sender: FDA-Public Use
  Company Number: PHHY2014BR003470

PATIENT
  Sex: Male
  Weight: 70 kg

DRUGS (2)
  1. DIOVAN [Suspect]
     Indication: BLOOD PRESSURE ABNORMAL
     Dosage: 1 DF (160 MG), DAILY
     Route: 048
     Dates: start: 2004
  2. SOMALGIN [Concomitant]
     Indication: PLASMA VISCOSITY ABNORMAL
     Dosage: 80 MG, UNK

REACTIONS (3)
  - Road traffic accident [Unknown]
  - Glaucoma [Not Recovered/Not Resolved]
  - Visual acuity reduced [Not Recovered/Not Resolved]
